FAERS Safety Report 6834732-2 (Version None)
Quarter: 2010Q3

REPORT INFORMATION
  Report Type: 
  Country: None (occurrence: None)
  Receive Date: 20100712
  Receipt Date: 20070613
  Transmission Date: 20110219
  Serious: No
  Sender: FDA-Public Use
  Company Number: US-PFIZER INC-2007023007

PATIENT
  Age: 63 Year
  Sex: Female

DRUGS (5)
  1. CHANTIX [Suspect]
  2. ZOLOFT [Concomitant]
  3. LORAZEPAM [Concomitant]
  4. MULTI-VITAMINS [Concomitant]
  5. VITACAL [Concomitant]

REACTIONS (4)
  - ABNORMAL BEHAVIOUR [None]
  - DRUG INTOLERANCE [None]
  - NAUSEA [None]
  - THIRST [None]
